FAERS Safety Report 9390456 (Version 1)
Quarter: 2013Q2

REPORT INFORMATION
  Report Type: Spontaneous
  Country: US (occurrence: None)
  Receive Date: 20130620
  Receipt Date: 20130620
  Transmission Date: 20140414
  Serious: No
  Sender: FDA-Public Use
  Company Number: US-145440

PATIENT
  Sex: Female

DRUGS (3)
  1. WINRHO SDF LIQUID [Suspect]
     Indication: AUTOIMMUNE THROMBOCYTOPENIA
     Route: 040
     Dates: start: 2009, end: 2009
  2. TYLENOL [Concomitant]
  3. BENADRYL [Concomitant]

REACTIONS (5)
  - Chromaturia [None]
  - Haemoglobin decreased [None]
  - Tremor [None]
  - Pyrexia [None]
  - Fatigue [None]
